FAERS Safety Report 22388246 (Version 1)
Quarter: 2023Q2

REPORT INFORMATION
  Report Type: Spontaneous
  Country: US (occurrence: None)
  Receive Date: 20230529
  Receipt Date: 20230529
  Transmission Date: 20230721
  Serious: Yes (Disabling)
  Sender: FDA-Public Use
  Company Number: None

PATIENT
  Age: 33 Year
  Sex: Male
  Weight: 67.5 kg

DRUGS (3)
  1. AFRIN NO DRIP SEVERE CONGESTION [Suspect]
     Active Substance: OXYMETAZOLINE HYDROCHLORIDE
     Indication: Sinus congestion
     Dosage: FREQUENCY : EVERY 12 HOURS;?
     Route: 055
  2. FINASTERIDE [Concomitant]
     Active Substance: FINASTERIDE
  3. VITAMIN D3 [Concomitant]
     Active Substance: CHOLECALCIFEROL

REACTIONS (3)
  - Anosmia [None]
  - Ageusia [None]
  - Rebound nasal congestion [None]

NARRATIVE: CASE EVENT DATE: 20230528
